FAERS Safety Report 6916563-8 (Version None)
Quarter: 2010Q3

REPORT INFORMATION
  Report Type: 
  Country: None (occurrence: None)
  Receive Date: 20100810
  Receipt Date: 20100805
  Transmission Date: 20110219
  Serious: Yes (Other)
  Sender: FDA-Public Use
  Company Number: GB-BRISTOL-MYERS SQUIBB COMPANY-15227473

PATIENT
  Age: 61 Year
  Sex: Male
  Weight: 98 kg

DRUGS (4)
  1. APROVEL [Suspect]
     Indication: HYPERTENSION
     Dosage: DOSE CHANGED TO 150 MG
     Route: 048
     Dates: start: 20091201, end: 20100701
  2. VITAMIN B [Concomitant]
     Indication: ALCOHOL PROBLEM
     Dosage: 1 DF: 1 TABLET
     Route: 048
     Dates: start: 20090517, end: 20100701
  3. METOPROLOL [Concomitant]
     Indication: HYPERTENSION
     Route: 048
     Dates: start: 20050519, end: 20100701
  4. FELODIPINE [Concomitant]
     Indication: HYPERTENSION
     Route: 048
     Dates: start: 20070512, end: 20100701

REACTIONS (3)
  - HALLUCINATION [None]
  - INSOMNIA [None]
  - NIGHTMARE [None]
